FAERS Safety Report 23088636 (Version 3)
Quarter: 2024Q1

REPORT INFORMATION
  Report Type: Spontaneous
  Country: JP (occurrence: None)
  Receive Date: 20231020
  Receipt Date: 20240214
  Transmission Date: 20240410
  Serious: Yes (Life-Threatening, Other)
  Sender: FDA-Public Use
  Company Number: 2023A096792

PATIENT
  Age: 64 Year
  Sex: Female
  Weight: 32 kg

DRUGS (6)
  1. LYNPARZA [Suspect]
     Active Substance: OLAPARIB
     Indication: Ovarian cancer recurrent
     Dosage: DOSE UNKNOWN
     Route: 048
     Dates: start: 20220202
  2. LYNPARZA [Suspect]
     Active Substance: OLAPARIB
     Indication: Ovarian cancer recurrent
     Dosage: DOSE UNKNOWN
     Route: 048
     Dates: end: 20230410
  3. PACLITAXEL [Concomitant]
     Active Substance: PACLITAXEL
     Indication: Ovarian cancer recurrent
     Dosage: DOSE UNKNOWN
  4. CARBOPLATIN [Concomitant]
     Active Substance: CARBOPLATIN
     Indication: Ovarian cancer recurrent
     Dosage: DOSE UNKNOWN
  5. TRULICITY [Concomitant]
     Active Substance: DULAGLUTIDE
     Dosage: DOSE UNKNOWN
  6. PITAVASTATIN CALCIUM [Concomitant]
     Active Substance: PITAVASTATIN CALCIUM
     Dosage: DOSE UNKNOWN

REACTIONS (3)
  - Metastases to lymph nodes [Unknown]
  - Myelodysplastic syndrome [Not Recovered/Not Resolved]
  - Polyarteritis nodosa [Unknown]

NARRATIVE: CASE EVENT DATE: 20230101
